FAERS Safety Report 9686591 (Version 2)
Quarter: 2014Q1

REPORT INFORMATION
  Report Type: Spontaneous
  Country: US (occurrence: US)
  Receive Date: 20131113
  Receipt Date: 20140312
  Transmission Date: 20141002
  Serious: Yes (Hospitalization)
  Sender: FDA-Public Use
  Company Number: US-GLAXOSMITHKLINE-A1049077A

PATIENT
  Age: 59 Year
  Sex: Male

DRUGS (4)
  1. VENTOLIN [Suspect]
     Indication: ASTHMA
     Dosage: 2PUFF SIX TIMES PER DAY
     Route: 055
     Dates: start: 20130605
  2. SYMBICORT [Concomitant]
  3. ALBUTEROL [Concomitant]
  4. NICOTINE PATCH [Concomitant]

REACTIONS (7)
  - Pulmonary congestion [Recovering/Resolving]
  - Investigation [Unknown]
  - Dyspnoea [Recovering/Resolving]
  - Drug administration error [Recovering/Resolving]
  - Chronic obstructive pulmonary disease [Recovering/Resolving]
  - Bronchitis [Recovering/Resolving]
  - Emphysema [Recovering/Resolving]
